FAERS Safety Report 15168961 (Version 1)
Quarter: 2018Q3

REPORT INFORMATION
  Report Type: Spontaneous
  Country: FR (occurrence: FR)
  Receive Date: 20180720
  Receipt Date: 20180720
  Transmission Date: 20181010
  Serious: Yes (Hospitalization)
  Sender: FDA-Public Use
  Company Number: FR-AUROBINDO-AUR-APL-2018-033312

PATIENT
  Age: 43 Year
  Sex: Male

DRUGS (3)
  1. TRIFLURIDINE. [Concomitant]
     Active Substance: TRIFLURIDINE
     Indication: OPHTHALMIC HERPES SIMPLEX
     Dosage: UNK
     Route: 065
  2. GANCICLOVIR. [Concomitant]
     Active Substance: GANCICLOVIR
     Indication: OPHTHALMIC HERPES SIMPLEX
     Dosage: UNK
     Route: 065
  3. ACICLOVIR TABLETS [Suspect]
     Active Substance: ACYCLOVIR
     Indication: OPHTHALMIC HERPES SIMPLEX
     Dosage: UNK
     Route: 048

REACTIONS (2)
  - Drug ineffective [Unknown]
  - Drug resistance [Unknown]
